FAERS Safety Report 13028772 (Version 1)
Quarter: 2016Q4

REPORT INFORMATION
  Report Type: Spontaneous
  Country: US (occurrence: US)
  Receive Date: 20161214
  Receipt Date: 20161214
  Transmission Date: 20170207
  Serious: Yes (Hospitalization)
  Sender: FDA-Public Use
  Company Number: US-BIOMARINAP-US-2016-111937

PATIENT
  Age: 27 Year

DRUGS (1)
  1. ALDURAZYME [Suspect]
     Active Substance: LARONIDASE
     Indication: MUCOPOLYSACCHARIDOSIS I
     Dosage: UNK
     Route: 041
     Dates: start: 20041107

REACTIONS (3)
  - Surgery [Recovering/Resolving]
  - Post procedural complication [Recovering/Resolving]
  - Sensory loss [Recovering/Resolving]

NARRATIVE: CASE EVENT DATE: 20161116
